FAERS Safety Report 8918936 (Version 1)
Quarter: 2012Q4

REPORT INFORMATION
  Report Type: 
  Country: US (occurrence: US)
  Receive Date: 20121121
  Receipt Date: 20121121
  Transmission Date: 20130627
  Serious: Yes (Hospitalization)
  Sender: FDA-Public Use
  Company Number: US-OPTIMER-20120158

PATIENT

DRUGS (4)
  1. DIFICID [Suspect]
     Indication: CLOSTRIDIUM DIFFICILE COLITIS
     Dosage: 200 mg, bid
     Route: 048
     Dates: start: 201111, end: 201111
  2. COREG [Concomitant]
     Indication: CARDIAC DISORDER
     Dosage: UNK, bid
     Route: 048
  3. LASIX [Concomitant]
     Dosage: UNK
     Route: 048
  4. ALDACTONE [Concomitant]
     Indication: HEPATIC CIRRHOSIS
     Dosage: UNK
     Route: 048

REACTIONS (4)
  - Hip fracture [Recovered/Resolved]
  - Cellulitis [Unknown]
  - Clostridium difficile colitis [Not Recovered/Not Resolved]
  - Disease recurrence [Not Recovered/Not Resolved]
